FAERS Safety Report 7338848-6 (Version None)
Quarter: 2011Q1

REPORT INFORMATION
  Report Type: 
  Country: None (occurrence: None)
  Receive Date: 20110308
  Receipt Date: 20110228
  Transmission Date: 20110831
  Serious: Yes (Hospitalization, Other)
  Sender: FDA-Public Use
  Company Number: US-ROCHE-719286

PATIENT
  Sex: Male
  Weight: 68.5 kg

DRUGS (2)
  1. ACCUTANE [Suspect]
     Route: 048
     Dates: start: 20000115
  2. ACCUTANE [Suspect]
     Route: 048
     Dates: start: 20010701, end: 20010901

REACTIONS (9)
  - JEJUNAL ULCER [None]
  - DEPRESSION [None]
  - HAEMORRHOIDS [None]
  - ARTHRALGIA [None]
  - OSTEOPENIA [None]
  - CROHN'S DISEASE [None]
  - INFLAMMATORY BOWEL DISEASE [None]
  - ARTHRITIS [None]
  - ANAEMIA [None]
